FAERS Safety Report 10424819 (Version 2)
Quarter: 2014Q3

REPORT INFORMATION
  Report Type: Spontaneous
  Country: US (occurrence: US)
  Receive Date: 20140902
  Receipt Date: 20140902
  Transmission Date: 20150326
  Serious: Yes (Hospitalization, Other)
  Sender: FDA-Public Use
  Company Number: PHHY2012US116415

PATIENT
  Age: 47 Year
  Sex: Male

DRUGS (21)
  1. LIORESAL [Suspect]
     Active Substance: BACLOFEN
     Dosage: 1000.9 UG, DAILY
     Route: 037
  2. DEPAKOTE [Suspect]
     Active Substance: DIVALPROEX SODIUM
     Dosage: 3 DF, QD
  3. SENOKOT [Suspect]
     Active Substance: SENNOSIDES
     Indication: CONSTIPATION
     Dosage: 2 TABLETS AT BEDTIME AS NEEDED
  4. BENZONATATE. [Suspect]
     Active Substance: BENZONATATE
     Dosage: 1 DF, TID
  5. LIORESAL [Suspect]
     Active Substance: BACLOFEN
     Dosage: 960 UG, UNK
  6. LORATADINE. [Suspect]
     Active Substance: LORATADINE
     Dosage: 10 MG, DAILY
  7. COLACE [Suspect]
     Active Substance: DOCUSATE SODIUM
     Dosage: 2 CAPSULES AT BEDTIME
  8. ZOCOR [Suspect]
     Active Substance: SIMVASTATIN
     Dosage: 40 MG, DAILY
  9. LIORESAL [Suspect]
     Active Substance: BACLOFEN
     Dosage: 910 UG, DAILY
     Route: 037
  10. KLONOPIN [Suspect]
     Active Substance: CLONAZEPAM
     Dosage: 1 MG, TID (AT 8:00AM, 4:00PM, AND 8:00PM)
  11. NASONEX [Suspect]
     Active Substance: MOMETASONE FUROATE
     Dosage: 2 SPRAYS IN EACH NOSTRIL DAILY
  12. DICYCLOMINE HYDROCHLORIDE. [Suspect]
     Active Substance: DICYCLOMINE HYDROCHLORIDE
     Dosage: 1 TABLET BEFORE MEALS AT BEDTIME
  13. PREVACID [Suspect]
     Active Substance: LANSOPRAZOLE
     Dosage: 30 MG, DAILY
  14. CARAFATE [Suspect]
     Active Substance: SUCRALFATE
     Dosage: 2 TABLESPOONS 4 TIMES PER DAY BEFORE MEALS AND AT BEDTIME
  15. CRANBERRY//VACCINIUM MACROCARPON [Suspect]
     Active Substance: CRANBERRY
     Dosage: 1 DF, BID
  16. LIORESAL [Suspect]
     Active Substance: BACLOFEN
     Indication: MUSCLE SPASTICITY
     Dosage: 960.6 UG, DAILY
     Route: 037
  17. LIORESAL [Suspect]
     Active Substance: BACLOFEN
     Dosage: 1009 UG, DAILY
     Route: 037
  18. BUDESONIDE. [Suspect]
     Active Substance: BUDESONIDE
     Dosage: 2 DF, PER DAY
  19. TAMSULOSIN [Suspect]
     Active Substance: TAMSULOSIN
     Dosage: 0.4 MG, DAILY
  20. MIRALAX [Suspect]
     Active Substance: POLYETHYLENE GLYCOL 3350
     Dosage: 1 DF, QOD
  21. CLONAZEPAM. [Concomitant]
     Active Substance: CLONAZEPAM
     Dosage: UNK UKN, UNK

REACTIONS (21)
  - Coma [Unknown]
  - Aphasia [Unknown]
  - Unevaluable event [Unknown]
  - Constipation [Unknown]
  - Somnolence [Unknown]
  - Depressed level of consciousness [Unknown]
  - Clonus [Unknown]
  - Hypotonia [Unknown]
  - Mobility decreased [Unknown]
  - Electroencephalogram abnormal [Unknown]
  - Culture urine positive [Unknown]
  - Fatigue [Unknown]
  - Local swelling [None]
  - Local swelling [Unknown]
  - Posture abnormal [Unknown]
  - Weight fluctuation [Unknown]
  - Muscle spasticity [Unknown]
  - Hypersomnia [Unknown]
  - Snoring [Unknown]
  - Stupor [Unknown]
  - Unresponsive to stimuli [Unknown]

NARRATIVE: CASE EVENT DATE: 20121210
